FAERS Safety Report 6394267-0 (Version None)
Quarter: 2009Q4

REPORT INFORMATION
  Report Type: 
  Country: None (occurrence: None)
  Receive Date: 20091008
  Receipt Date: 20090928
  Transmission Date: 20100525
  Serious: Yes (Hospitalization, Other)
  Sender: FDA-Public Use
  Company Number: BR-ELI_LILLY_AND_COMPANY-BR200909006645

PATIENT
  Age: 44 Year
  Sex: Female

DRUGS (8)
  1. ZYPREXA [Suspect]
     Dosage: 10 MG, UNKNOWN
     Route: 065
     Dates: start: 20090910
  2. ZYPREXA [Suspect]
     Dosage: 20 MG, UNKNOWN
     Route: 065
  3. RISPERIDONE [Concomitant]
     Dosage: 6 MG, UNKNOWN
     Route: 065
  4. HALOPERIDOL DECANOATE [Concomitant]
     Dosage: UNK, OTHER
     Route: 065
  5. MELLARIL [Concomitant]
     Dosage: 100 MG, UNKNOWN
     Route: 065
  6. BIPERIDENO [Concomitant]
     Dosage: UNK, UNKNOWN
     Route: 065
  7. ACIDO VALPROICO [Concomitant]
     Dosage: UNK, UNKNOWN
     Route: 065
  8. DIAZEPAM [Concomitant]
     Dosage: UNK, UNKNOWN
     Route: 065

REACTIONS (3)
  - ANEURYSM [None]
  - DIABETES MELLITUS [None]
  - HAEMORRHAGIC STROKE [None]
